FAERS Safety Report 24092155 (Version 1)
Quarter: 2024Q3

REPORT INFORMATION
  Report Type: Other
  Country: US (occurrence: US)
  Receive Date: 20240715
  Receipt Date: 20240715
  Transmission Date: 20241017
  Serious: No
  Sender: BIOCON
  Company Number: US-BIOCON BIOLOGICS LIMITED-BBL2024003804

PATIENT

DRUGS (1)
  1. FULPHILA [Suspect]
     Active Substance: PEGFILGRASTIM-JMDB
     Indication: Breast cancer
     Dosage: UNK
     Route: 065

REACTIONS (2)
  - Generalised oedema [Unknown]
  - Rash [Unknown]

NARRATIVE: CASE EVENT DATE: 20190516
